FAERS Safety Report 6209707-7 (Version None)
Quarter: 2009Q2

REPORT INFORMATION
  Report Type: 
  Country: None (occurrence: None)
  Receive Date: 20090601
  Receipt Date: 20090525
  Transmission Date: 20091009
  Serious: Yes (Hospitalization, Disabling)
  Sender: FDA-Public Use
  Company Number: BR-ASTRAZENECA-2009UW13287

PATIENT
  Age: 92 Year
  Sex: Female

DRUGS (9)
  1. SEROQUEL [Suspect]
     Indication: DEMENTIA ALZHEIMER'S TYPE
     Route: 048
     Dates: start: 20080101
  2. SEROQUEL [Suspect]
     Indication: DEMENTIA
     Route: 048
     Dates: start: 20080101
  3. SEROQUEL [Suspect]
     Route: 048
  4. SEROQUEL [Suspect]
     Route: 048
  5. ATENS [Concomitant]
     Indication: HYPERTENSION
     Route: 048
     Dates: end: 20080901
  6. DILACORON [Concomitant]
     Indication: HYPERTENSION
     Route: 048
     Dates: end: 20080901
  7. LOSARTAN POTASSIUM [Concomitant]
     Indication: HYPERTENSION
     Route: 048
     Dates: start: 20080901
  8. OMEPRAZOLE [Concomitant]
     Indication: REFLUX OESOPHAGITIS
     Route: 048
  9. ALENIA [Concomitant]
     Indication: BRONCHITIS
     Route: 055

REACTIONS (5)
  - COUGH [None]
  - EOSINOPHIL COUNT INCREASED [None]
  - FEMUR FRACTURE [None]
  - SYNCOPE [None]
  - VOMITING [None]
